FAERS Safety Report 6070505-9 (Version None)
Quarter: 2009Q1

REPORT INFORMATION
  Report Type: 
  Country: None (occurrence: None)
  Receive Date: 20090121
  Receipt Date: 20030926
  Transmission Date: 20090719
  Serious: Yes (Other)
  Sender: FDA-Public Use
  Company Number: HQWYE002603OCT03

PATIENT
  Age: 70 Year
  Sex: Female

DRUGS (6)
  1. PREMPRO [Suspect]
     Indication: VULVOVAGINAL DRYNESS
     Dosage: ORAL
     Route: 048
     Dates: start: 19990601, end: 20000601
  2. OGEN [Suspect]
     Indication: VULVOVAGINAL DRYNESS
     Dates: start: 19840101, end: 19870101
  3. PREMARIN [Suspect]
     Indication: VULVOVAGINAL DRYNESS
     Dates: start: 19840101, end: 19951001
  4. PREMARIN [Suspect]
     Indication: VULVOVAGINAL DRYNESS
     Dosage: ORAL
     Route: 048
     Dates: start: 19950101, end: 19960101
  5. PREMARIN [Suspect]
     Indication: HOT FLUSH
     Dosage: ORAL
     Route: 048
     Dates: start: 19960101, end: 19990101
  6. PROVERA [Suspect]
     Indication: VULVOVAGINAL DRYNESS
     Dates: start: 19950101, end: 19990101

REACTIONS (1)
  - BREAST CANCER [None]
